FAERS Safety Report 7763132 (Version 6)
Quarter: 2014Q2

REPORT INFORMATION
  Report Type: Spontaneous
  Country: US (occurrence: US)
  Receive Date: 20110118
  Receipt Date: 20140507
  Transmission Date: 20141212
  Serious: Yes (Hospitalization, Other)
  Sender: FDA-Public Use
  Company Number: US-BAYER-2011-004894

PATIENT
  Age: 24 Year
  Sex: Female
  Weight: 131.52 kg

DRUGS (3)
  1. YASMIN [Suspect]
     Indication: CONTRACEPTION
     Dosage: UNK
     Dates: start: 200406, end: 2006
  2. IBUPROFEN [Concomitant]
     Indication: ANALGESIC THERAPY
     Dosage: 1-2 , PRN
  3. SYNTHROID [Concomitant]
     Indication: THYROID DISORDER
     Dosage: UNK
     Dates: start: 2009

REACTIONS (5)
  - Gallbladder disorder [None]
  - Cholelithiasis [None]
  - Pain [None]
  - Injury [None]
  - Emotional distress [None]
